FAERS Safety Report 5079619-3 (Version None)
Quarter: 2006Q3

REPORT INFORMATION
  Report Type: 
  Country: None (occurrence: None)
  Receive Date: 20060814
  Receipt Date: 20060803
  Transmission Date: 20061208
  Serious: Yes (Hospitalization)
  Sender: FDA-Public Use
  Company Number: FR-BOEHRINGER INGELHEIM PHARMACEUTICALS, INC.-2006-FF-00676FF

PATIENT
  Age: 49 Year
  Sex: Male
  Weight: 50 kg

DRUGS (5)
  1. APTIVUS [Suspect]
     Indication: HIV INFECTION
     Dosage: TPV/RTV:  500/200 MG B.I.D.
     Route: 048
     Dates: start: 20060601, end: 20060619
  2. TRUVADA [Concomitant]
  3. NATULAN [Concomitant]
  4. SOLUPRED [Concomitant]
  5. OXYCONTIN [Concomitant]

REACTIONS (4)
  - ASCITES [None]
  - CALCINOSIS [None]
  - HEPATOSPLENOMEGALY [None]
  - JAUNDICE [None]
